FAERS Safety Report 21930064 (Version 1)
Quarter: 2023Q1

REPORT INFORMATION
  Report Type: Spontaneous
  Country: US (occurrence: US)
  Receive Date: 20230131
  Receipt Date: 20230131
  Transmission Date: 20230418
  Serious: No
  Sender: FDA-Public Use
  Company Number: US-BEH-2023154722

PATIENT
  Sex: Female
  Weight: 73.923 kg

DRUGS (1)
  1. HIZENTRA [Suspect]
     Active Substance: HUMAN IMMUNOGLOBULIN G
     Indication: Selective IgG subclass deficiency
     Dosage: 28 GRAM, QOW
     Route: 058
     Dates: start: 20221229

REACTIONS (3)
  - Weight increased [Unknown]
  - Upper respiratory tract infection [Recovering/Resolving]
  - Dermatitis contact [Unknown]
